FAERS Safety Report 8759655 (Version 2)
Quarter: 2013Q1

REPORT INFORMATION
  Report Type: Report from Study
  Country: JP (occurrence: JP)
  Receive Date: 20120829
  Receipt Date: 20130325
  Transmission Date: 20140127
  Serious: Yes (Hospitalization)
  Sender: FDA-Public Use
  Company Number: JP-AMGEN-JPNSP2012053400

PATIENT
  Age: 39 Year
  Sex: Female

DRUGS (2)
  1. ROMIPLOSTIM [Suspect]
     Indication: IDIOPATHIC THROMBOCYTOPENIC PURPURA
     Dosage: UNK
     Route: 058
  2. ANABOLIC STEROIDS AND PREPARATIONS [Concomitant]
     Dosage: UNK
     Route: 048

REACTIONS (2)
  - Platelet count decreased [Recovered/Resolved]
  - Antibody test [Unknown]
